FAERS Safety Report 4687492-8 (Version None)
Quarter: 2005Q2

REPORT INFORMATION
  Report Type: 
  Country: None (occurrence: None)
  Receive Date: 20050610
  Receipt Date: 20031229
  Transmission Date: 20051028
  Serious: Yes (Hospitalization, Other)
  Sender: FDA-Public Use
  Company Number: PHEH2003US11704

PATIENT
  Age: 44 Year
  Sex: Female

DRUGS (12)
  1. ZELNORM [Suspect]
     Indication: IRRITABLE BOWEL SYNDROME
     Dosage: 6 MG, BID
     Route: 048
     Dates: start: 20021113, end: 20031222
  2. CELEXA [Concomitant]
  3. KLONOPIN [Concomitant]
  4. MIRALAX [Concomitant]
  5. PREVACID [Concomitant]
  6. OMEPRAZOLE [Concomitant]
  7. ALPRAZOLAM [Concomitant]
     Indication: ANXIETY
  8. ONDANSETRON [Suspect]
     Indication: NAUSEA
     Dosage: UNK, PRN
  9. PROMETHAZINE [Concomitant]
     Indication: NAUSEA
     Dosage: UNK, PRN
  10. DOCUSATE [Concomitant]
  11. MILK OF MAGNESIA [Concomitant]
  12. CITALOPRAM [Concomitant]

REACTIONS (25)
  - ABDOMINAL DISTENSION [None]
  - ABDOMINAL PAIN LOWER [None]
  - ANOREXIA [None]
  - ASTHENIA [None]
  - C-REACTIVE PROTEIN INCREASED [None]
  - COLITIS ISCHAEMIC [None]
  - DIARRHOEA HAEMORRHAGIC [None]
  - DRUG INEFFECTIVE [None]
  - DRUG INTOLERANCE [None]
  - DYSCHEZIA [None]
  - ERYTHEMA [None]
  - GASTROINTESTINAL MOTILITY DISORDER [None]
  - HAEMATOCHEZIA [None]
  - HAEMORRHOIDS [None]
  - IMPAIRED GASTRIC EMPTYING [None]
  - INFLAMMATORY BOWEL DISEASE [None]
  - INTESTINAL FUNCTIONAL DISORDER [None]
  - LEUKOCYTOSIS [None]
  - MALAISE [None]
  - MUCOSAL INFLAMMATION [None]
  - MUCOSAL ULCERATION [None]
  - NAUSEA [None]
  - OEDEMA MUCOSAL [None]
  - RED BLOOD CELL SEDIMENTATION RATE INCREASED [None]
  - WEIGHT DECREASED [None]
